FAERS Safety Report 5056248-9 (Version None)
Quarter: 2006Q3

REPORT INFORMATION
  Report Type: 
  Country: None (occurrence: None)
  Receive Date: 20060717
  Receipt Date: 20060703
  Transmission Date: 20061208
  Serious: Yes (Hospitalization)
  Sender: FDA-Public Use
  Company Number: 2006085975

PATIENT
  Age: 69 Year
  Sex: Female

DRUGS (10)
  1. ATARAX [Suspect]
     Indication: DRUG USE FOR UNKNOWN INDICATION
     Dosage: ORAL
     Route: 048
     Dates: start: 20020108, end: 20020109
  2. RANITIDINE HCL [Suspect]
     Indication: DRUG USE FOR UNKNOWN INDICATION
     Dates: start: 20020108, end: 20020109
  3. VISIPAQUE (IODIXANOL, TROMETAMOL) [Suspect]
     Indication: DRUG USE FOR UNKNOWN INDICATION
     Dosage: INTRAVENOUS
     Route: 042
     Dates: start: 20020109, end: 20020109
  4. PLAVIX [Suspect]
     Indication: DRUG USE FOR UNKNOWN INDICATION
     Dosage: ORAL
     Route: 048
     Dates: start: 20020109, end: 20020111
  5. SOLU-MEDROL [Suspect]
     Indication: DRUG USE FOR UNKNOWN INDICATION
     Dosage: (240 MG), INTRAVENOUS
     Route: 042
     Dates: start: 20020109, end: 20020109
  6. ASPEGIC 1000 [Suspect]
     Indication: DRUG USE FOR UNKNOWN INDICATION
     Dosage: (250 MG), ORAL
     Route: 048
     Dates: start: 20011230
  7. INDAPAMIDE [Concomitant]
  8. BISOPROLOL FUMARATE [Concomitant]
  9. RAMIPRIL [Concomitant]
  10. PRAVASTATIN [Concomitant]

REACTIONS (6)
  - CONDITION AGGRAVATED [None]
  - DERMATITIS EXFOLIATIVE [None]
  - EOSINOPHILIA [None]
  - GENERALISED ERYTHEMA [None]
  - INTERTRIGO [None]
  - PRURITUS [None]
